FAERS Safety Report 7734350 (Version 8)
Quarter: 2013Q1

REPORT INFORMATION
  Report Type: Report from Study
  Country: DE (occurrence: DE)
  Receive Date: 20101223
  Receipt Date: 20130215
  Transmission Date: 20140127
  Serious: Yes (Life-Threatening, Hospitalization)
  Sender: FDA-Public Use
  Company Number: DE-ROCHE-749243

PATIENT
  Age: 62 Year
  Sex: Male
  Weight: 90 kg

DRUGS (3)
  1. CAPECITABINE [Suspect]
     Indication: RECTAL CANCER
     Dosage: FREQUENCY: BID DAY1-33 WITHOUT WEEKENDS, LAST DOSE PRIOR TO SAE: 13 DECEMBER 2010
     Route: 048
     Dates: start: 20101122, end: 20101213
  2. OXALIPLATIN [Suspect]
     Indication: RECTAL CANCER
     Dosage: FREQUENCY: DAY 1, 8, 15, 22 AND 28, LAST DOSE PRIOR TO SAE: 13 DECEMBER 2010, TREATMENT DELAYED
     Route: 042
     Dates: start: 20101122, end: 20101213
  3. UNSPECIFIED INGREDIENT [Suspect]
     Indication: DIARRHOEA
     Dosage: DOSE: 15 DROPS PER DAY, REPORTED AS: TINCTURA OPII
     Route: 048
     Dates: start: 20101215, end: 20101219

REACTIONS (3)
  - Ileus paralytic [Recovered/Resolved with Sequelae]
  - Hypovolaemic shock [Recovered/Resolved with Sequelae]
  - Renal failure acute [Unknown]
